FAERS Safety Report 8618839-5 (Version None)
Quarter: 2012Q3

REPORT INFORMATION
  Report Type: 
  Country: None (occurrence: None)
  Receive Date: 20120824
  Receipt Date: 20120816
  Transmission Date: 20120928
  Serious: Yes (Other)
  Sender: FDA-Public Use
  Company Number: 2012SP000607

PATIENT
  Age: 11 Year
  Sex: Female
  Weight: 34 kg

DRUGS (6)
  1. XOPENEX [Concomitant]
  2. MOMETASONE FUROATE [Concomitant]
  3. ALLERGENS NOS [Concomitant]
     Route: 058
  4. CICLESONIDE [Suspect]
     Indication: RHINITIS PERENNIAL
     Route: 045
     Dates: start: 20120126, end: 20120220
  5. TYLENOL /00435101/ [Concomitant]
  6. IBUPROFEN [Concomitant]

REACTIONS (1)
  - HERPES ZOSTER [None]
